FAERS Safety Report 9300030 (Version 1)
Quarter: 2012Q4

REPORT INFORMATION
  Report Type: Spontaneous
  Country: JP (occurrence: None)
  Receive Date: 20121107
  Receipt Date: 20121107
  Transmission Date: 20130627
  Serious: Yes (Hospitalization)
  Sender: FDA-Public Use
  Company Number: TPA2012A08626

PATIENT
  Sex: Male

DRUGS (5)
  1. FEBURIC [Suspect]
     Indication: HYPERURICAEMIA
     Route: 048
     Dates: start: 20120728, end: 20120928
  2. OLMETEC [Suspect]
     Route: 048
     Dates: start: 20120728, end: 20120928
  3. FLUITRAN (TRICHLORMETHIAZIDE BENIDIPINE HYDROCHLORIDE (BENIDIPINE HYDROCHLORIDE) [Concomitant]
  4. BENIDIPINE HYDROCHLORIDE (BENIDIPINE HYDROCHLORIDE) [Concomitant]
  5. RADEN (RANITIDINE HYDROCHLORIDE) [Concomitant]

REACTIONS (2)
  - Drug-induced liver injury [None]
  - Gallbladder cancer recurrent [None]
